FAERS Safety Report 5075019-0 (Version None)
Quarter: 2006Q3

REPORT INFORMATION
  Report Type: 
  Country: None (occurrence: None)
  Receive Date: 20060804
  Receipt Date: 20060722
  Transmission Date: 20061208
  Serious: Yes (Other)
  Sender: FDA-Public Use
  Company Number: 2006090992

PATIENT
  Age: 70 Year
  Sex: Male
  Weight: 81.1939 kg

DRUGS (10)
  1. LYRICA [Suspect]
     Indication: DIABETIC NEUROPATHY
     Dosage: 150 MG (75 MG 2 IN 1 D)
     Dates: start: 20060720
  2. DIOVAN [Concomitant]
  3. LOTREL [Concomitant]
  4. ATENOLOL [Concomitant]
  5. DIURETICS (DIURETICS) [Concomitant]
  6. ZOCOR [Concomitant]
  7. ACTOS [Concomitant]
  8. GLYBURIDE [Concomitant]
  9. ASPIRIN [Concomitant]
  10. CILOSTAZOL [Concomitant]

REACTIONS (5)
  - ASTHENIA [None]
  - DIZZINESS [None]
  - HYPERTENSION [None]
  - NAUSEA [None]
  - PAIN [None]
